FAERS Safety Report 12673017 (Version 1)
Quarter: 2016Q3

REPORT INFORMATION
  Report Type: Spontaneous
  Country: US (occurrence: US)
  Receive Date: 20160822
  Receipt Date: 20160822
  Transmission Date: 20161109
  Serious: No
  Sender: FDA-Public Use
  Company Number: US-BAYER-2016-150095

PATIENT
  Age: 96 Year
  Sex: Male
  Weight: 64.85 kg

DRUGS (2)
  1. BAYER LOW DOSE [Suspect]
     Active Substance: ASPIRIN
     Dosage: 1 DF, BID
     Route: 048
     Dates: start: 2001
  2. MIRALAX [Suspect]
     Active Substance: POLYETHYLENE GLYCOL 3350
     Indication: CONSTIPATION
     Dosage: 1 DF, QD
     Route: 048
     Dates: start: 20160802

REACTIONS (2)
  - Product use issue [None]
  - Pollakiuria [None]

NARRATIVE: CASE EVENT DATE: 20160802
